FAERS Safety Report 11422676 (Version 2)
Quarter: 2015Q4

REPORT INFORMATION
  Report Type: Spontaneous
  Country: GB (occurrence: GB)
  Receive Date: 20150827
  Receipt Date: 20151005
  Transmission Date: 20160304
  Serious: Yes (Hospitalization)
  Sender: FDA-Public Use
  Company Number: PHFR2015GB006299

PATIENT
  Age: 64 Year
  Sex: Male

DRUGS (3)
  1. CLOZARIL [Suspect]
     Active Substance: CLOZAPINE
     Indication: SCHIZOPHRENIA
     Dosage: UNK
     Route: 048
     Dates: start: 20150511, end: 20150820
  2. CLOZARIL [Suspect]
     Active Substance: CLOZAPINE
     Dosage: 100 MG, UNK
     Route: 048
  3. CLOZARIL [Suspect]
     Active Substance: CLOZAPINE
     Dosage: DOSE INCREASED BY 25 MGS
     Route: 048

REACTIONS (4)
  - Differential white blood cell count abnormal [Unknown]
  - Fall [Unknown]
  - Eating disorder [Unknown]
  - Polydipsia [Unknown]

NARRATIVE: CASE EVENT DATE: 20150615
